FAERS Safety Report 11495964 (Version 1)
Quarter: 2015Q3

REPORT INFORMATION
  Report Type: Report from Study
  Country: KR (occurrence: KR)
  Receive Date: 20150911
  Receipt Date: 20150911
  Transmission Date: 20151125
  Serious: No
  Sender: FDA-Public Use
  Company Number: PHHY2015KR110250

PATIENT
  Age: 43 Year
  Sex: Male

DRUGS (4)
  1. TASIGNA [Suspect]
     Active Substance: NILOTINIB
     Indication: CHRONIC MYELOID LEUKAEMIA
     Dosage: 800 MG, QD
     Route: 048
     Dates: start: 20131021
  2. BISOLVON [Concomitant]
     Active Substance: BROMHEXINE HYDROCHLORIDE
     Indication: UPPER RESPIRATORY TRACT INFECTION
     Dosage: 24 MG, UNK
     Route: 048
     Dates: start: 20131111, end: 20131118
  3. COFREL//BENPROPERINE EMBONATE [Concomitant]
     Indication: UPPER RESPIRATORY TRACT INFECTION
     Dosage: 60 MG, UNK
     Route: 048
     Dates: start: 20131111, end: 20131118
  4. SUDAFED [Concomitant]
     Active Substance: PSEUDOEPHEDRINE HYDROCHLORIDE
     Indication: UPPER RESPIRATORY TRACT INFECTION
     Dosage: 180 MG, UNK
     Route: 048
     Dates: start: 20131111, end: 20131118

REACTIONS (1)
  - Rash [Recovered/Resolved]

NARRATIVE: CASE EVENT DATE: 20140113
